FAERS Safety Report 5633893-0 (Version None)
Quarter: 2008Q1

REPORT INFORMATION
  Report Type: 
  Country: None (occurrence: None)
  Receive Date: 20080221
  Receipt Date: 20080201
  Transmission Date: 20080703
  Serious: No
  Sender: FDA-Public Use
  Company Number: US-BOEHRINGER INGELHEIM GMBH, GERMANY-2007-BP-25463BP

PATIENT
  Age: 64 Year
  Sex: Male

DRUGS (1)
  1. FLOMAX [Suspect]
     Route: 048
     Dates: start: 20070620

REACTIONS (1)
  - DRUG INEFFECTIVE [None]
